FAERS Safety Report 9792139 (Version 2)
Quarter: 2014Q1

REPORT INFORMATION
  Report Type: Report from Study
  Country: US (occurrence: US)
  Receive Date: 20140102
  Receipt Date: 20140109
  Transmission Date: 20141002
  Serious: Yes (Life-Threatening, Hospitalization)
  Sender: FDA-Public Use
  Company Number: US-TEVA-453763USA

PATIENT
  Age: 1 Year
  Sex: Female

DRUGS (5)
  1. LESTAURTINIB [Suspect]
     Indication: ACUTE LYMPHOCYTIC LEUKAEMIA
     Dates: start: 20121202, end: 20131208
  2. CYCLOPHOSPHAMIDE [Suspect]
     Dates: start: 20121202, end: 20131108
  3. CYTARABINE [Suspect]
     Indication: ACUTE LYMPHOCYTIC LEUKAEMIA
     Dates: start: 20121202, end: 20131126
  4. PEG-L-ASPARAGINASE [Suspect]
     Indication: ACUTE LYMPHOCYTIC LEUKAEMIA
     Dates: start: 20121202, end: 20131126
  5. ETOPOSIDE [Suspect]
     Dates: start: 20121202, end: 20131108

REACTIONS (2)
  - Sepsis [Recovering/Resolving]
  - Hypoxia [Recovering/Resolving]
